FAERS Safety Report 8602452-X (Version None)
Quarter: 2012Q3

REPORT INFORMATION
  Report Type: 
  Country: None (occurrence: None)
  Receive Date: 20120817
  Receipt Date: 20120809
  Transmission Date: 20120928
  Serious: Yes (Other)
  Sender: FDA-Public Use
  Company Number: JP-ROCHE-1085418

PATIENT
  Sex: Male

DRUGS (10)
  1. ROCEPHIN [Suspect]
     Route: 041
     Dates: start: 20120626, end: 20120628
  2. LEVOFLOXACIN [Concomitant]
     Indication: PNEUMONIA
     Route: 048
     Dates: start: 20120612, end: 20120614
  3. LEVOFLOXACIN [Concomitant]
     Route: 048
     Dates: start: 20120628
  4. MUCOSOLVAN L [Concomitant]
     Indication: PRODUCTIVE COUGH
     Route: 048
     Dates: start: 20120618, end: 20120623
  5. ROCEPHIN [Suspect]
     Route: 041
     Dates: start: 20120618, end: 20120623
  6. ROCEPHIN [Suspect]
     Route: 041
     Dates: start: 20120630, end: 20120630
  7. LOXONIN [Concomitant]
     Indication: PYREXIA
     Route: 048
     Dates: start: 20120612, end: 20120615
  8. GARENOXACIN MESYLATE [Concomitant]
     Indication: PNEUMONIA
     Route: 048
     Dates: start: 20120614, end: 20120627
  9. ROCEPHIN [Suspect]
     Indication: PNEUMONIA
     Route: 041
     Dates: start: 20120614, end: 20120616
  10. ROCEPHIN [Suspect]
     Route: 041
     Dates: start: 20120702, end: 20120702

REACTIONS (1)
  - SHOCK [None]
